FAERS Safety Report 18894187 (Version 2)
Quarter: 2021Q1

REPORT INFORMATION
  Report Type: Spontaneous
  Country: DE (occurrence: DE)
  Receive Date: 20210215
  Receipt Date: 20210217
  Transmission Date: 20210420
  Serious: Yes (Death, Hospitalization, Other)
  Sender: FDA-Public Use
  Company Number: NVSC2021DE033832

PATIENT

DRUGS (5)
  1. VOLTAREN [Suspect]
     Active Substance: DICLOFENAC SODIUM
     Indication: BACK PAIN
     Route: 065
  2. VOLTAREN [Suspect]
     Active Substance: DICLOFENAC SODIUM
     Indication: BACK PAIN
     Dosage: UNK
     Route: 065
  3. VOLTAREN [Suspect]
     Active Substance: DICLOFENAC SODIUM
     Indication: BACK PAIN
     Dosage: UNK
     Route: 065
  4. VOLTAREN [Suspect]
     Active Substance: DICLOFENAC SODIUM
     Indication: BACK PAIN
     Dosage: UNK
     Route: 065
  5. BORTEZOMIB. [Suspect]
     Active Substance: BORTEZOMIB
     Indication: PRODUCT USED FOR UNKNOWN INDICATION
     Route: 065

REACTIONS (18)
  - Drug abuse [Unknown]
  - Peripheral swelling [Unknown]
  - Pulse abnormal [Unknown]
  - Suspected COVID-19 [Fatal]
  - Cardiovascular disorder [Unknown]
  - Febrile infection [Unknown]
  - Bed rest [Fatal]
  - Intentional product misuse [Unknown]
  - Weight decreased [Fatal]
  - Blood pressure abnormal [Unknown]
  - Blood test abnormal [Unknown]
  - Acute kidney injury [Fatal]
  - Asthenia [Fatal]
  - Social problem [Unknown]
  - Plasmacytoma [Unknown]
  - Necrosis [Unknown]
  - Thoracic vertebral fracture [Unknown]
  - Impaired healing [Unknown]
